FAERS Safety Report 5478619-9 (Version None)
Quarter: 2007Q4

REPORT INFORMATION
  Report Type: 
  Country: None (occurrence: None)
  Receive Date: 20071005
  Receipt Date: 20070924
  Transmission Date: 20080405
  Serious: Yes (Hospitalization)
  Sender: FDA-Public Use
  Company Number: US-SHR-US-2007-028453

PATIENT
  Age: 68 Year
  Sex: Male

DRUGS (7)
  1. LEUKINE [Suspect]
     Indication: PROSTATE CANCER
     Dosage: 250 MCG/M2, 3 DAYS/WEEKX12MONS
     Route: 058
     Dates: start: 20070619
  2. THALIDOMIDE [Suspect]
     Indication: PROSTATE CANCER
     Dosage: 200 MG, BED T.
     Route: 048
     Dates: start: 20070622, end: 20070729
  3. THALIDOMIDE [Suspect]
     Dosage: 100 MG, 1X/DAY
     Route: 048
     Dates: start: 20070808
  4. DOCETAXEL [Suspect]
     Indication: PROSTATE CANCER
     Dosage: 75 MG/M2, Q 3 WEEKS X 18 WEEKS
     Route: 042
     Dates: start: 20070619
  5. COUMADIN [Concomitant]
     Dosage: 2.5 MG, BED T.X 12 MONS
     Route: 048
     Dates: start: 20070619
  6. COUMADIN [Concomitant]
     Dosage: 5 MG, BED T.
     Route: 048
  7. DEXAMETHASONE 0.5MG TAB [Concomitant]
     Indication: PREMEDICATION
     Dosage: 8 MG,12HRS/3HRS/1HR BEFORE DOSE
     Route: 048
     Dates: start: 20070619

REACTIONS (1)
  - PULMONARY EMBOLISM [None]
